FAERS Safety Report 16815963 (Version 3)
Quarter: 2019Q4

REPORT INFORMATION
  Report Type: Spontaneous
  Country: IT (occurrence: IT)
  Receive Date: 20190917
  Receipt Date: 20191002
  Transmission Date: 20200122
  Serious: Yes (Other)
  Sender: FDA-Public Use
  Company Number: IT-TEVA-2019-IT-1107122

PATIENT
  Age: 71 Year
  Sex: Female

DRUGS (6)
  1. FLUOROURACILE TEVA [Suspect]
     Active Substance: FLUOROURACIL
     Indication: COLON CANCER
     Dosage: 960 MILLIGRAM
     Route: 040
     Dates: start: 20190805, end: 20190807
  2. FLUOROURACILE TEVA [Suspect]
     Active Substance: FLUOROURACIL
     Dosage: 1440 MILLIGRAM
     Route: 042
     Dates: start: 20190805, end: 20190807
  3. RANITIDINE HYDROCHLORIDE. [Concomitant]
     Active Substance: RANITIDINE HYDROCHLORIDE
  4. DEXAMETHASONE. [Concomitant]
     Active Substance: DEXAMETHASONE
  5. ERBITUX [Suspect]
     Active Substance: CETUXIMAB
     Indication: COLON CANCER
     Dosage: 800 MILLIGRAM
     Route: 042
     Dates: start: 20190805, end: 20190807
  6. IRINOTECAN KABI [Suspect]
     Active Substance: IRINOTECAN
     Indication: COLON CANCER
     Dosage: 216 MILLIGRAM
     Route: 042
     Dates: start: 20190805, end: 20190807

REACTIONS (2)
  - Neutropenia [Unknown]
  - Leukopenia [Unknown]

NARRATIVE: CASE EVENT DATE: 20190826
